FAERS Safety Report 11680167 (Version 3)
Quarter: 2015Q4

REPORT INFORMATION
  Report Type: Spontaneous
  Country: US (occurrence: US)
  Receive Date: 20151027
  Receipt Date: 20151110
  Transmission Date: 20160304
  Serious: No
  Sender: FDA-Public Use
  Company Number: US-ELI_LILLY_AND_COMPANY-US201011001616

PATIENT
  Sex: Female

DRUGS (2)
  1. FORTEO [Suspect]
     Active Substance: TERIPARATIDE
     Dosage: UNK, UNKNOWN
     Route: 065
     Dates: start: 201101
  2. FORTEO [Suspect]
     Active Substance: TERIPARATIDE
     Indication: OSTEOPOROSIS
     Dosage: UNK, UNKNOWN
     Route: 065
     Dates: start: 201010

REACTIONS (11)
  - Influenza [Unknown]
  - Back pain [Unknown]
  - Muscular weakness [Unknown]
  - Nasopharyngitis [Unknown]
  - Myalgia [Unknown]
  - Gait disturbance [Unknown]
  - Pain in extremity [Unknown]
  - Spinal deformity [Unknown]
  - Bone pain [Unknown]
  - Nerve injury [Unknown]
  - Neuralgia [Unknown]
